FAERS Safety Report 5872039-0 (Version None)
Quarter: 2008Q3

REPORT INFORMATION
  Report Type: 
  Country: None (occurrence: None)
  Receive Date: 20080905
  Receipt Date: 20080821
  Transmission Date: 20090109
  Serious: Yes (Other)
  Sender: FDA-Public Use
  Company Number: US-BAYER-200714071BCC

PATIENT
  Sex: Male

DRUGS (3)
  1. ASPIRIN [Suspect]
     Indication: DRUG USE FOR UNKNOWN INDICATION
     Route: 048
  2. PLAVIX [Suspect]
  3. PLAVIX [Concomitant]

REACTIONS (7)
  - CARDIAC FAILURE CONGESTIVE [None]
  - DEMENTIA [None]
  - DIABETES MELLITUS [None]
  - GASTRIC DISORDER [None]
  - GASTRIC ULCER [None]
  - GASTROENTERITIS [None]
  - RENAL FAILURE [None]
